FAERS Safety Report 24044343 (Version 2)
Quarter: 2024Q3

REPORT INFORMATION
  Report Type: Report from Study
  Country: US (occurrence: US)
  Receive Date: 20240703
  Receipt Date: 20240911
  Transmission Date: 20241017
  Serious: Yes (Hospitalization, Other)
  Sender: ABBVIE
  Company Number: US-ABBVIE-5822946

PATIENT
  Sex: Male
  Weight: 111 kg

DRUGS (2)
  1. SKYRIZI [Suspect]
     Active Substance: RISANKIZUMAB-RZAA
     Indication: Psoriatic arthropathy
     Dosage: FORM STRENGTH: 150 MILLIGRAM?FREQUENCY: WEEK 0
     Route: 058
     Dates: start: 20240422, end: 20240422
  2. SKYRIZI [Suspect]
     Active Substance: RISANKIZUMAB-RZAA
     Indication: Psoriasis
     Dosage: FORM STRENGTH: 150 MILLIGRAM?FREQUENCY: WEEK 4 ?THEN (PENDING DOSE) EVERY 12 WEEKS THEREAFTER
     Route: 058
     Dates: start: 20240501, end: 20240501

REACTIONS (4)
  - Laryngeal neoplasm [Unknown]
  - Diabetes mellitus [Unknown]
  - Hospitalisation [Unknown]
  - Pituitary tumour [Unknown]

NARRATIVE: CASE EVENT DATE: 20240101
